FAERS Safety Report 6629851-X (Version None)
Quarter: 2010Q1

REPORT INFORMATION
  Report Type: 
  Country: None (occurrence: None)
  Receive Date: 20100311
  Receipt Date: 20090706
  Transmission Date: 20100710
  Serious: No
  Sender: FDA-Public Use
  Company Number: US-BIOGENIDEC-2009BI020587

PATIENT
  Age: 52 Year
  Sex: Female

DRUGS (2)
  1. AVONEX [Suspect]
     Indication: MULTIPLE SCLEROSIS
     Route: 030
     Dates: start: 20090601
  2. PROZAC [Concomitant]
     Indication: MENOPAUSE
     Route: 048

REACTIONS (3)
  - DEPRESSION [None]
  - LOSS OF CONTROL OF LEGS [None]
  - SENSATION OF HEAVINESS [None]
